FAERS Safety Report 9054005 (Version 1)
Quarter: 2013Q1

REPORT INFORMATION
  Report Type: Spontaneous
  Country: US (occurrence: US)
  Receive Date: 20130208
  Receipt Date: 20130208
  Transmission Date: 20140127
  Serious: Yes (Hospitalization, Other)
  Sender: FDA-Public Use
  Company Number: US-BAYER-2013-013028

PATIENT
  Age: 67 Year
  Sex: Female

DRUGS (15)
  1. SIMVASTATIN [Suspect]
     Indication: HYPERCHOLESTEROLAEMIA
  2. SOTALOL [Suspect]
     Indication: ATRIAL FIBRILLATION
  3. DOCETAXEL [Suspect]
     Indication: BREAST CANCER STAGE II
     Dosage: UNK UNK, Q3WK X 4 CYCLES
  4. CYCLOPHOSPHAMIDE [Concomitant]
     Dosage: UNK UNK, Q3WK X 4 CYCLES
  5. PROPAFENONE [Concomitant]
     Indication: ATRIAL FIBRILLATION
     Dosage: UNK
  6. PEGFILGRASTIM [Concomitant]
  7. DEXAMETHASONE [Concomitant]
  8. PALONOSETRON [Concomitant]
  9. APREPITANT [Concomitant]
  10. HYDRALAZINE [Concomitant]
  11. FUROSEMIDE [Concomitant]
  12. FOLIC ACID [Concomitant]
  13. EZETIMIBE [Concomitant]
  14. METOPROLOL [Concomitant]
  15. ASPIRIN [Concomitant]

REACTIONS (2)
  - Atrial fibrillation [Recovered/Resolved]
  - Drug ineffective [Recovered/Resolved]
